FAERS Safety Report 5218084-X (Version None)
Quarter: 2007Q1

REPORT INFORMATION
  Report Type: 
  Country: None (occurrence: None)
  Receive Date: 20061130
  Receipt Date: 20060620
  Transmission Date: 20070707
  Serious: Yes (Hospitalization, Other)
  Sender: FDA-Public Use
  Company Number: US200605004085

PATIENT
  Sex: Male
  Weight: 81.6 kg

DRUGS (19)
  1. ZYPREXA [Suspect]
     Dosage: SEE IMAGE
     Dates: start: 19980319, end: 19980801
  2. ZYPREXA [Suspect]
     Dosage: SEE IMAGE
     Dates: start: 19980801, end: 19981101
  3. ZYPREXA [Suspect]
     Dosage: SEE IMAGE
     Dates: start: 19981101, end: 19990101
  4. ZYPREXA [Suspect]
     Dosage: SEE IMAGE
     Dates: start: 19990101, end: 19990301
  5. ZYPREXA [Suspect]
     Dosage: SEE IMAGE
     Dates: start: 19990401, end: 19990501
  6. ZYPREXA [Suspect]
     Dosage: SEE IMAGE
     Dates: start: 19990601, end: 19990801
  7. ZYPREXA [Suspect]
     Dosage: SEE IMAGE
     Dates: start: 19990901, end: 19991101
  8. ZYPREXA [Suspect]
     Dosage: SEE IMAGE
     Dates: start: 19991201, end: 20000201
  9. ZYPREXA [Suspect]
     Dosage: SEE IMAGE
     Dates: start: 20010501, end: 20010801
  10. ZYPREXA [Suspect]
     Dosage: SEE IMAGE
     Dates: start: 20011101, end: 20020101
  11. SEROQUEL [Concomitant]
  12. RISPERIDONE [Concomitant]
  13. HALDOL SOLUTAB [Concomitant]
  14. MELLARIL [Concomitant]
  15. DEPAKOTE [Concomitant]
  16. LITHIUM CARBONATE [Concomitant]
  17. WELLBUTRIN [Concomitant]
  18. LOPRESSOR [Concomitant]
  19. ACARBOSE [Concomitant]

REACTIONS (8)
  - DIABETES MELLITUS [None]
  - DIABETIC KETOACIDOSIS [None]
  - HYPERGLYCAEMIA [None]
  - HYPOGLYCAEMIA [None]
  - MYOCARDIAL ISCHAEMIA [None]
  - POLYDIPSIA [None]
  - POLYURIA [None]
  - WEIGHT INCREASED [None]
